FAERS Safety Report 7918456-6 (Version None)
Quarter: 2011Q4

REPORT INFORMATION
  Report Type: 
  Country: None (occurrence: None)
  Receive Date: 20111116
  Receipt Date: 20111111
  Transmission Date: 20120403
  Serious: Yes (Hospitalization)
  Sender: FDA-Public Use
  Company Number: PHHO2010US16072

PATIENT
  Sex: Male
  Weight: 75.1 kg

DRUGS (8)
  1. ATENOLOL [Concomitant]
     Dosage: 100 MG, UNK
  2. AFINITOR [Suspect]
     Indication: NEOPLASM
     Dosage: 5 MG, QD
     Route: 048
     Dates: start: 20100504, end: 20101017
  3. OXALIPLATIN [Suspect]
     Indication: NEOPLASM
     Dosage: 190 MG, UNK
     Route: 042
     Dates: start: 20100504, end: 20100615
  4. POTASSIUM [Concomitant]
     Dosage: 10 MEQ, UNK
  5. AVASTIN [Suspect]
     Indication: NEOPLASM
     Dosage: 600 MG, UNK
     Route: 042
     Dates: start: 20100504
  6. ASCORBIC ACID [Concomitant]
     Dosage: 500 MG, UNK
  7. LIPITOR [Concomitant]
     Dosage: 10 MG, UNK
  8. CAPECITABINE [Suspect]
     Indication: NEOPLASM
     Dosage: 1000 MG, BID
     Route: 048
     Dates: start: 20100504, end: 20101012

REACTIONS (1)
  - ARTERIAL THROMBOSIS [None]
